FAERS Safety Report 7587344-X (Version None)
Quarter: 2011Q3

REPORT INFORMATION
  Report Type: 
  Country: None (occurrence: None)
  Receive Date: 20110701
  Receipt Date: 20110621
  Transmission Date: 20111222
  Serious: Yes (Other)
  Sender: FDA-Public Use
  Company Number: US-AMGEN-USASP2011031717

PATIENT
  Age: 71 Year
  Sex: Male

DRUGS (3)
  1. ENBREL [Suspect]
     Dosage: 50 MG, Q2WK
  2. ENBREL [Suspect]
     Indication: ANKYLOSING SPONDYLITIS
     Dosage: 50 MG, QWK
     Dates: start: 20100101, end: 20110617
  3. MOBIC [Concomitant]
     Dosage: UNK

REACTIONS (4)
  - AGGRESSION [None]
  - DEPRESSION [None]
  - CRYING [None]
  - MOOD ALTERED [None]
